FAERS Safety Report 8364657-5 (Version None)
Quarter: 2012Q2

REPORT INFORMATION
  Report Type: 
  Country: None (occurrence: None)
  Receive Date: 20120516
  Receipt Date: 20120511
  Transmission Date: 20120825
  Serious: Yes (Hospitalization)
  Sender: FDA-Public Use
  Company Number: JP-ROCHE-803890

PATIENT
  Sex: Female
  Weight: 36 kg

DRUGS (8)
  1. ACTEMRA [Suspect]
     Route: 041
  2. LOXONIN [Concomitant]
     Indication: PAIN
     Route: 048
     Dates: end: 20111020
  3. MARZULENE S [Concomitant]
     Route: 048
     Dates: end: 20111020
  4. ACTEMRA [Suspect]
     Route: 041
  5. ACTEMRA [Suspect]
     Indication: RHEUMATOID ARTHRITIS
     Route: 041
     Dates: start: 20090217, end: 20090609
  6. RHEUMATREX [Concomitant]
     Indication: RHEUMATOID ARTHRITIS
     Route: 048
     Dates: start: 20000101
  7. RHEUMATREX [Concomitant]
     Route: 048
     Dates: start: 20000101, end: 20090211
  8. RHEUMATREX [Concomitant]
     Route: 048
     Dates: start: 20091016, end: 20100213

REACTIONS (7)
  - INTERSTITIAL LUNG DISEASE [None]
  - SJOGREN'S SYNDROME [None]
  - NORMOCHROMIC NORMOCYTIC ANAEMIA [None]
  - RHEUMATOID VASCULITIS [None]
  - VASCULITIS [None]
  - RETINAL HAEMORRHAGE [None]
  - PURPURA [None]
